FAERS Safety Report 9649286 (Version 1)
Quarter: 2013Q4

REPORT INFORMATION
  Report Type: Report from Study
  Country: MW (occurrence: MW)
  Receive Date: 20131028
  Receipt Date: 20131028
  Transmission Date: 20140711
  Serious: Yes (Hospitalization)
  Sender: FDA-Public Use
  Company Number: MW-VIIV HEALTHCARE LIMITED-B0936042A

PATIENT
  Age: 0 Day
  Sex: Female
  Weight: 2.6 kg

DRUGS (3)
  1. ZIDOVUDINE [Suspect]
     Indication: HIV INFECTION
     Dosage: 300MG TWICE PER DAY
     Route: 048
     Dates: start: 20130718, end: 20130920
  2. NEVIRAPINE [Suspect]
     Indication: HIV INFECTION
     Dosage: 200MG PER DAY
     Route: 048
     Dates: start: 20130919, end: 20130919
  3. TRUVADA [Suspect]
     Indication: HIV INFECTION
     Route: 048
     Dates: start: 20130920, end: 20130920

REACTIONS (1)
  - Premature baby [Recovered/Resolved]
